FAERS Safety Report 4795256-X (Version None)
Quarter: 2005Q3

REPORT INFORMATION
  Report Type: 
  Country: None (occurrence: None)
  Receive Date: 20050916
  Receipt Date: 20040823
  Transmission Date: 20060218
  Serious: Yes (Other)
  Sender: FDA-Public Use
  Company Number: US-JNJFOC-20040808138

PATIENT
  Age: 50 Year
  Sex: Female
  Weight: 56.246 kg

DRUGS (1)
  1. TOPAMAX [Suspect]
     Indication: DEPRESSION
     Dosage: 200 MG, 2 IN 1 DAY, ORAL
     Route: 048
     Dates: start: 20030801

REACTIONS (2)
  - DEPRESSION [None]
  - WEIGHT DECREASED [None]
